FAERS Safety Report 4332872-3 (Version None)
Quarter: 2004Q1

REPORT INFORMATION
  Report Type: 
  Country: None (occurrence: None)
  Receive Date: 20040330
  Receipt Date: 20040315
  Transmission Date: 20041129
  Serious: Yes (Hospitalization)
  Sender: FDA-Public Use
  Company Number: 163-20785-03120199

PATIENT
  Age: 50 Year
  Sex: Male

DRUGS (5)
  1. THALOMID [Suspect]
     Indication: METASTATIC MALIGNANT MELANOMA
     Dosage: 100 MG, QD, ORAL
     Route: 048
     Dates: start: 20031111, end: 20031203
  2. TEMOZOLOMIDE (TEMOZOLOMIDE) (UNKNOWN) [Suspect]
     Indication: METASTATIC MALIGNANT MELANOMA
     Dosage: 175 MG, QD, ORAL
     Route: 048
     Dates: start: 20031110, end: 20031219
  3. TEGRETOL [Suspect]
     Indication: CONVULSION
     Dosage: 200 MG, TID, UNKNOWN
     Dates: start: 20031104, end: 20031219
  4. NEURONTIN [Concomitant]
  5. DECADRON [Concomitant]

REACTIONS (19)
  - BLOOD LACTATE DEHYDROGENASE INCREASED [None]
  - BLOOD UREA DECREASED [None]
  - CHILLS [None]
  - CONJUNCTIVAL DISORDER [None]
  - DRY MOUTH [None]
  - EAR INFECTION [None]
  - FEELING COLD [None]
  - HAEMATOCRIT DECREASED [None]
  - HAEMOGLOBIN DECREASED [None]
  - HUNGER [None]
  - INFREQUENT BOWEL MOVEMENTS [None]
  - INTERNATIONAL NORMALISED RATIO DECREASED [None]
  - MARKEDLY REDUCED DIETARY INTAKE [None]
  - NASOPHARYNGITIS [None]
  - PROTHROMBIN TIME PROLONGED [None]
  - RED BLOOD CELL COUNT DECREASED [None]
  - SINUSITIS [None]
  - STEVENS-JOHNSON SYNDROME [None]
  - TOXIC EPIDERMAL NECROLYSIS [None]
